FAERS Safety Report 8935974 (Version 2)
Quarter: 2012Q4

REPORT INFORMATION
  Report Type: 
  Country: US (occurrence: US)
  Receive Date: 20121130
  Receipt Date: 20121205
  Transmission Date: 20130627
  Serious: Yes (Other)
  Sender: FDA-Public Use
  Company Number: US-PFIZER INC-2012297814

PATIENT
  Age: 76 Year
  Sex: Male

DRUGS (1)
  1. INLYTA [Suspect]
     Indication: CARCINOMA KIDNEY
     Dosage: 5 mg, 2x/day
     Route: 048
     Dates: start: 20121010

REACTIONS (3)
  - Cerebrovascular accident [Unknown]
  - Aphagia [Unknown]
  - Asthenia [Unknown]
